FAERS Safety Report 12246164 (Version 1)
Quarter: 2016Q2

REPORT INFORMATION
  Report Type: Spontaneous
  Country: US (occurrence: US)
  Receive Date: 20160407
  Receipt Date: 20160407
  Transmission Date: 20160815
  Serious: No
  Sender: FDA-Public Use
  Company Number: US-MDT-ADR-2016-00636

PATIENT
  Age: 65 Year
  Sex: Female

DRUGS (1)
  1. LIORESAL [Suspect]
     Active Substance: BACLOFEN
     Dosage: 64.72 MCG/DAY
     Route: 037

REACTIONS (2)
  - Tremor [Unknown]
  - Muscular weakness [Unknown]
